FAERS Safety Report 6584596-X (Version None)
Quarter: 2010Q1

REPORT INFORMATION
  Report Type: 
  Country: None (occurrence: None)
  Receive Date: 20100217
  Receipt Date: 20091105
  Transmission Date: 20100710
  Serious: Yes (Other)
  Sender: FDA-Public Use
  Company Number: US-ELI_LILLY_AND_COMPANY-US201002003639

PATIENT
  Sex: Female

DRUGS (1)
  1. BYETTA [Suspect]
     Route: 058
     Dates: start: 20081001

REACTIONS (3)
  - ABDOMINAL DISCOMFORT [None]
  - HYPERSENSITIVITY [None]
  - PANCREATITIS [None]
